FAERS Safety Report 10861589 (Version 2)
Quarter: 2015Q1

REPORT INFORMATION
  Report Type: Report from Study
  Country: FR (occurrence: FR)
  Receive Date: 20150224
  Receipt Date: 20150225
  Transmission Date: 20150721
  Serious: Yes (Hospitalization, Disabling, Other)
  Sender: FDA-Public Use
  Company Number: FR-EISAI MEDICAL RESEARCH-E7080-00994-CLI-FR

PATIENT
  Age: 70 Year
  Sex: Female
  Weight: 49 kg

DRUGS (25)
  1. LENVATINIB [Suspect]
     Active Substance: LENVATINIB
     Route: 048
     Dates: start: 20131001, end: 20131028
  2. DIFFU K [Concomitant]
     Active Substance: POTASSIUM CHLORIDE
  3. MOPRAL [Concomitant]
     Active Substance: OMEPRAZOLE SODIUM
  4. TIORFAN [Concomitant]
     Active Substance: RACECADOTRIL
  5. PARCETAMOL/CODEINE [Concomitant]
  6. SMECTA [Concomitant]
     Active Substance: MONTMORILLONITE
  7. LOXAN [Concomitant]
  8. LENVATINIB [Suspect]
     Active Substance: LENVATINIB
     Route: 048
     Dates: start: 20121002, end: 20121003
  9. LENVATINIB [Suspect]
     Active Substance: LENVATINIB
     Route: 048
     Dates: start: 20121018, end: 20130919
  10. SILLICIUM NAIL POLISH [Concomitant]
  11. DOLIPRANE [Concomitant]
     Active Substance: ACETAMINOPHEN
  12. OLMETEC [Concomitant]
     Active Substance: OLMESARTAN MEDOXOMIL
  13. LENVATINIB [Suspect]
     Active Substance: LENVATINIB
     Route: 048
     Dates: start: 20131029, end: 20140120
  14. GAVISCON [Concomitant]
     Active Substance: ALUMINUM HYDROXIDE\MAGNESIUM CARBONATE
  15. MAG 2 [Concomitant]
     Active Substance: MAGNESIUM CHLORIDE
  16. DENOSUMAB [Concomitant]
     Active Substance: DENOSUMAB
  17. LENVATINIB [Suspect]
     Active Substance: LENVATINIB
     Route: 048
     Dates: start: 20140208, end: 20141222
  18. ORACAL [Concomitant]
  19. UNALFA [Concomitant]
  20. LENVATINIB [Suspect]
     Active Substance: LENVATINIB
     Indication: THYROID CANCER
     Route: 048
     Dates: start: 20120320, end: 20121001
  21. DOLIPRANE [Concomitant]
     Active Substance: ACETAMINOPHEN
  22. CYSTEIN B6 VITAMIN [Concomitant]
  23. ALPRESS [Concomitant]
     Active Substance: PRAZOSIN
  24. IMODIUM [Concomitant]
     Active Substance: LOPERAMIDE HYDROCHLORIDE
  25. CRESTOR [Concomitant]
     Active Substance: ROSUVASTATIN CALCIUM

REACTIONS (4)
  - Renal failure [Recovered/Resolved]
  - Coronary artery stenosis [Not Recovered/Not Resolved]
  - Arthralgia [Recovered/Resolved]
  - Ventricular hypokinesia [Recovered/Resolved]

NARRATIVE: CASE EVENT DATE: 20121006
